FAERS Safety Report 15489245 (Version 1)
Quarter: 2018Q4

REPORT INFORMATION
  Report Type: Spontaneous
  Country: US (occurrence: US)
  Receive Date: 20181004
  Receipt Date: 20181004
  Transmission Date: 20190205
  Serious: Yes (Other)
  Sender: FDA-Public Use
  Company Number: None

PATIENT
  Age: 59 Year
  Sex: Female
  Weight: 62.6 kg

DRUGS (3)
  1. FAMOTIDINE. [Concomitant]
     Active Substance: FAMOTIDINE
     Dates: start: 20180828, end: 20180907
  2. DIPHENHYDRAMINE. [Suspect]
     Active Substance: DIPHENHYDRAMINE
     Indication: CHEMOTHERAPY
     Dosage: ?          OTHER FREQUENCY:EVERY 21 DAYS;?
     Route: 040
     Dates: start: 20180828, end: 20180907
  3. DEXAMETHASONE. [Concomitant]
     Active Substance: DEXAMETHASONE
     Dates: start: 20180828, end: 20180907

REACTIONS (6)
  - Tremor [None]
  - Disorientation [None]
  - Limb discomfort [None]
  - Muscle twitching [None]
  - Lethargy [None]
  - Nervousness [None]

NARRATIVE: CASE EVENT DATE: 20180907
